FAERS Safety Report 13022942 (Version 1)
Quarter: 2016Q4

REPORT INFORMATION
  Report Type: Spontaneous
  Country: US (occurrence: US)
  Receive Date: 20161213
  Receipt Date: 20161213
  Transmission Date: 20170207
  Serious: No
  Sender: FDA-Public Use
  Company Number: US-GLAXOSMITHKLINE-US2016GSK183923

PATIENT
  Sex: Female

DRUGS (8)
  1. LOVAZA [Suspect]
     Active Substance: OMEGA-3-ACID ETHYL ESTERS
     Indication: BLOOD PRESSURE ABNORMAL
  2. WELLBUTRIN XL [Suspect]
     Active Substance: BUPROPION HYDROCHLORIDE
     Indication: ABDOMINAL PAIN UPPER
  3. ADVAIR DISKUS [Suspect]
     Active Substance: FLUTICASONE PROPIONATE\SALMETEROL XINAFOATE
     Indication: ASTHMA
  4. VOLTAREN [Suspect]
     Active Substance: DICLOFENAC SODIUM
     Indication: ARTHRITIS
     Dosage: UNK
     Dates: start: 201402
  5. WELLBUTRIN XL [Suspect]
     Active Substance: BUPROPION HYDROCHLORIDE
     Indication: DEPRESSION
  6. ASPIRIN. [Suspect]
     Active Substance: ASPIRIN
     Indication: PAIN
     Dosage: 10 MG, UNK
  7. ASPIRIN. [Suspect]
     Active Substance: ASPIRIN
     Indication: PYREXIA
  8. SEREVENT DISKUS [Suspect]
     Active Substance: SALMETEROL XINAFOATE
     Indication: ASTHMA

REACTIONS (13)
  - Urinary incontinence [Unknown]
  - Asthma [Unknown]
  - Drug hypersensitivity [Unknown]
  - Malaise [Unknown]
  - Urticaria [Unknown]
  - Drug ineffective [Unknown]
  - Constipation [Unknown]
  - Gastritis [Unknown]
  - Cough [Unknown]
  - Abdominal pain upper [Unknown]
  - Lethargy [Unknown]
  - Agitation [Unknown]
  - Anxiety [Unknown]
